FAERS Safety Report 15608099 (Version 1)
Quarter: 2018Q4

REPORT INFORMATION
  Report Type: Spontaneous
  Country: DE (occurrence: DE)
  Receive Date: 20181112
  Receipt Date: 20181112
  Transmission Date: 20190205
  Serious: Yes (Other)
  Sender: FDA-Public Use
  Company Number: DE-PFIZER INC-2018455837

PATIENT
  Age: 55 Year
  Sex: Female

DRUGS (1)
  1. PREGABALINE PFIZER [Suspect]
     Active Substance: PREGABALIN
     Dosage: UNK
     Dates: start: 201809

REACTIONS (1)
  - Postmenopausal haemorrhage [Unknown]

NARRATIVE: CASE EVENT DATE: 2018
